FAERS Safety Report 7797391-0 (Version None)
Quarter: 2011Q4

REPORT INFORMATION
  Report Type: 
  Country: None (occurrence: None)
  Receive Date: 20111005
  Receipt Date: 20110929
  Transmission Date: 20120403
  Serious: Yes (Hospitalization, Other)
  Sender: FDA-Public Use
  Company Number: ES-PFIZER INC-2011234140

PATIENT
  Age: 33 Year
  Sex: Female

DRUGS (2)
  1. VARENICLINE TARTRATE [Suspect]
     Indication: NICOTINE DEPENDENCE
     Dosage: 0.5 MG, /DAY
  2. VARENICLINE TARTRATE [Suspect]
     Dosage: 1 MG, 1X/DAY

REACTIONS (14)
  - ANXIETY [None]
  - ABNORMAL BEHAVIOUR [None]
  - THINKING ABNORMAL [None]
  - RESTLESSNESS [None]
  - HEADACHE [None]
  - PSYCHOTIC DISORDER [None]
  - NAUSEA [None]
  - SPEECH DISORDER [None]
  - HALLUCINATION, AUDITORY [None]
  - DELIRIUM [None]
  - DELUSION [None]
  - FEELING GUILTY [None]
  - INSOMNIA [None]
  - THOUGHT INSERTION [None]
